FAERS Safety Report 9720960 (Version 2)
Quarter: 2014Q1

REPORT INFORMATION
  Report Type: Spontaneous
  Country: IL (occurrence: IL)
  Receive Date: 20131129
  Receipt Date: 20140124
  Transmission Date: 20141002
  Serious: Yes (Death, Life-Threatening, Hospitalization)
  Sender: FDA-Public Use
  Company Number: IL-B.I. PHARMACEUTICALS,INC./RIDGEFIELD-2013-BI-39751IL

PATIENT
  Age: 87 Year
  Sex: Female

DRUGS (4)
  1. PRADAXA [Suspect]
     Indication: ATRIAL FIBRILLATION
     Dosage: 220 MG
     Route: 048
     Dates: end: 20131126
  2. FUROSEMIDE [Concomitant]
     Indication: MITRAL VALVE INCOMPETENCE
     Dosage: 160 MG
     Route: 048
  3. RAMIPRIL [Concomitant]
     Dosage: 5 MG
     Route: 048
  4. ATENOLOL [Concomitant]
     Dosage: 25 MG
     Route: 048

REACTIONS (5)
  - Gastrointestinal haemorrhage [Fatal]
  - Renal impairment [Fatal]
  - Cardiac failure [Fatal]
  - Coagulopathy [Fatal]
  - Multi-organ failure [Fatal]
